FAERS Safety Report 5324488-7 (Version None)
Quarter: 2007Q2

REPORT INFORMATION
  Report Type: 
  Country: None (occurrence: None)
  Receive Date: 20070514
  Receipt Date: 20070503
  Transmission Date: 20071010
  Serious: Yes (Other)
  Sender: FDA-Public Use
  Company Number: US-PFIZER INC-2006147274

PATIENT
  Sex: Male

DRUGS (2)
  1. BEXTRA [Suspect]
     Indication: PAIN
     Dates: start: 20030101, end: 20030813
  2. BEXTRA [Suspect]
     Indication: ARTHRITIS

REACTIONS (2)
  - ARRHYTHMIA [None]
  - HYPERTENSION [None]
